FAERS Safety Report 7548609-0 (Version None)
Quarter: 2011Q2

REPORT INFORMATION
  Report Type: 
  Country: None (occurrence: None)
  Receive Date: 20110608
  Receipt Date: 20110527
  Transmission Date: 20111010
  Serious: Yes (Disabling, Other)
  Sender: FDA-Public Use
  Company Number: ACO_24854_2011

PATIENT
  Age: 50 Year
  Sex: Female
  Weight: 54.4 kg

DRUGS (4)
  1. AMPYRA [Suspect]
     Indication: GAIT DISTURBANCE
     Dosage: 10 MG, QD
     Dates: start: 20100901, end: 20100901
  2. VITAMIN D [Concomitant]
  3. FISH OIL (FISH OIL) [Concomitant]
  4. VITAMIN TAB [Concomitant]

REACTIONS (4)
  - BALANCE DISORDER [None]
  - INAPPROPRIATE SCHEDULE OF DRUG ADMINISTRATION [None]
  - MOVEMENT DISORDER [None]
  - GAIT DISTURBANCE [None]
